FAERS Safety Report 22108278 (Version 1)
Quarter: 2023Q1

REPORT INFORMATION
  Report Type: Spontaneous
  Country: US (occurrence: US)
  Receive Date: 20230317
  Receipt Date: 20230317
  Transmission Date: 20230418
  Serious: Yes (Life-Threatening, Hospitalization, Other)
  Sender: FDA-Public Use
  Company Number: US-002147023-NVSC2023US060058

PATIENT
  Sex: Female

DRUGS (1)
  1. RECLAST [Suspect]
     Active Substance: ZOLEDRONIC ACID
     Indication: Product used for unknown indication
     Dosage: UNK, ONCE/SINGLE
     Route: 065
     Dates: start: 20221003

REACTIONS (8)
  - Pulmonary embolism [Unknown]
  - Thrombosis [Unknown]
  - Neoplasm malignant [Unknown]
  - Hypotension [Unknown]
  - Dyspnoea [Unknown]
  - Illness [Unknown]
  - Cardiac disorder [Unknown]
  - Pyrexia [Unknown]
